FAERS Safety Report 7090121-X (Version None)
Quarter: 2010Q4

REPORT INFORMATION
  Report Type: 
  Country: None (occurrence: None)
  Receive Date: 20101105
  Receipt Date: 20101105
  Transmission Date: 20110411
  Serious: Yes (Life-Threatening, Other)
  Sender: FDA-Public Use
  Company Number: None

PATIENT
  Age: 14 Month
  Sex: Female
  Weight: 8.1647 kg

DRUGS (1)
  1. TEETHING TABLETS HOMEOPATHIC HYLAND'S [Suspect]
     Indication: TEETHING
     Dosage: 3 TABLETS EVERY 6 HOURS PO
     Route: 048
     Dates: start: 20100501, end: 20100930

REACTIONS (3)
  - CONVULSION [None]
  - LOSS OF CONSCIOUSNESS [None]
  - RESPIRATORY ARREST [None]
